FAERS Safety Report 16182024 (Version 3)
Quarter: 2019Q2

REPORT INFORMATION
  Report Type: Spontaneous
  Country: US (occurrence: US)
  Receive Date: 20190410
  Receipt Date: 20190501
  Transmission Date: 20190711
  Serious: No
  Sender: FDA-Public Use
  Company Number: PHHY2019US075909

PATIENT
  Age: 69 Year
  Sex: Female

DRUGS (1)
  1. SYSTANE COMPLETE [Suspect]
     Active Substance: PROPYLENE GLYCOL
     Indication: DRY EYE
     Route: 047

REACTIONS (7)
  - Liquid product physical issue [Unknown]
  - Erythema of eyelid [Not Recovered/Not Resolved]
  - Swelling of eyelid [Recovered/Resolved]
  - Drug ineffective [Not Recovered/Not Resolved]
  - Asthenopia [Unknown]
  - Eye irritation [Not Recovered/Not Resolved]
  - Ocular hyperaemia [Recovered/Resolved]
